FAERS Safety Report 5746404-6 (Version None)
Quarter: 2008Q2

REPORT INFORMATION
  Report Type: 
  Country: None (occurrence: None)
  Receive Date: 20080520
  Receipt Date: 20080520
  Transmission Date: 20081010
  Serious: Yes (Hospitalization)
  Sender: FDA-Public Use
  Company Number: None

PATIENT
  Age: 65 Year
  Sex: Male
  Weight: 102 kg

DRUGS (11)
  1. DASATINIB 20 MG BMS [Suspect]
     Indication: FIBROMA
     Dosage: 70 MG BID PO
     Route: 048
     Dates: start: 20080507, end: 20080516
  2. DASATINIB 50 MG BMS [Suspect]
  3. BUPROPION HCL [Concomitant]
  4. FLUTICASONE-SALMETEROL [Concomitant]
  5. LEVOTHYROXINE SODIUM [Concomitant]
  6. ESCITALOPRAM [Concomitant]
  7. ACETAMINOPHEN AND HYDROCODONE BITARTRATE [Concomitant]
  8. PREGABLIN [Concomitant]
  9. CYCLOBENZAPRINE HCL [Concomitant]
  10. FERROUS SULFATE TAB [Concomitant]
  11. GABAPENTIN [Concomitant]

REACTIONS (1)
  - CHOLECYSTITIS [None]
